FAERS Safety Report 15511084 (Version 1)
Quarter: 2018Q4

REPORT INFORMATION
  Report Type: Spontaneous
  Country: US (occurrence: US)
  Receive Date: 20181017
  Receipt Date: 20181017
  Transmission Date: 20190205
  Serious: Yes (Death)
  Sender: FDA-Public Use
  Company Number: None

PATIENT
  Sex: Female

DRUGS (11)
  1. FLUOXETINE [Concomitant]
     Active Substance: FLUOXETINE HYDROCHLORIDE
  2. RISPERIDONE. [Concomitant]
     Active Substance: RISPERIDONE
  3. ESZOPICLONE. [Concomitant]
     Active Substance: ESZOPICLONE
  4. ATORVASTATIN [Concomitant]
     Active Substance: ATORVASTATIN
  5. PRAZOSIN. [Concomitant]
     Active Substance: PRAZOSIN
  6. LAMOTRIGINE. [Concomitant]
     Active Substance: LAMOTRIGINE
  7. ENOXAPARIN [Suspect]
     Active Substance: ENOXAPARIN
     Indication: NEOPLASM MALIGNANT
     Dosage: ?          OTHER FREQUENCY:EVERY 12HRS 28DAYS;?
     Route: 058
     Dates: start: 20180919
  8. SMZ [Concomitant]
     Active Substance: SULFAMETHOXAZOLE\TRIMETHOPRIM
  9. TMP [Concomitant]
     Active Substance: TRIMETHOPRIM
  10. DEXAMETHASON [Concomitant]
     Active Substance: DEXAMETHASONE
  11. VALSART/HCTZ [Concomitant]

REACTIONS (1)
  - Neoplasm malignant [None]
